FAERS Safety Report 10258587 (Version 1)
Quarter: 2014Q2

REPORT INFORMATION
  Report Type: Spontaneous
  Country: US (occurrence: None)
  Receive Date: 20140624
  Receipt Date: 20140624
  Transmission Date: 20141212
  Serious: Yes (Disabling)
  Sender: FDA-Public Use
  Company Number: None

PATIENT
  Age: 60 Year
  Sex: Male
  Weight: 72.58 kg

DRUGS (1)
  1. VANCOMYCIN [Suspect]
     Indication: STAPHYLOCOCCAL INFECTION
     Dosage: SEEMS CONTINUALLY, INTO A VEIN?
     Dates: start: 20140528, end: 20140612

REACTIONS (4)
  - Eye irritation [None]
  - Lacrimation increased [None]
  - Rash [None]
  - Deafness [None]
